FAERS Safety Report 19948849 (Version 1)
Quarter: 2021Q4

REPORT INFORMATION
  Report Type: Report from Study
  Country: EG (occurrence: EG)
  Receive Date: 20211013
  Receipt Date: 20211013
  Transmission Date: 20220303
  Serious: Yes (Other)
  Sender: FDA-Public Use
  Company Number: EG-NOVARTISPH-NVSC2021EG232219

PATIENT
  Age: 10 Year
  Sex: Female

DRUGS (2)
  1. OMNITROPE [Suspect]
     Active Substance: SOMATROPIN
     Indication: Growth hormone deficiency
     Dosage: 0.85 MG, QD
     Route: 058
     Dates: start: 20190204
  2. MILK POWDER [Concomitant]
     Indication: Diet failure
     Dosage: UNK UNK, BID(2 SPOONS ON CUP OF MILK, MORNING AND EVENING EVERYDAY)
     Route: 065

REACTIONS (8)
  - Blood glucose fluctuation [Recovered/Resolved]
  - Blood glucose increased [Recovered/Resolved]
  - Bone pain [Recovered/Resolved]
  - Gait disturbance [Recovered/Resolved]
  - Decreased appetite [Recovered/Resolved]
  - Hypotension [Recovered/Resolved]
  - Expired device used [Not Recovered/Not Resolved]
  - Product dose omission issue [Recovered/Resolved]

NARRATIVE: CASE EVENT DATE: 20210204
